FAERS Safety Report 20951329 (Version 1)
Quarter: 2022Q2

REPORT INFORMATION
  Report Type: Spontaneous
  Country: US (occurrence: None)
  Receive Date: 20220613
  Receipt Date: 20220613
  Transmission Date: 20220720
  Serious: Yes (Hospitalization)
  Sender: FDA-Public Use
  Company Number: None

PATIENT
  Age: 59 Year
  Sex: Female

DRUGS (1)
  1. CAPECITABINE [Suspect]
     Active Substance: CAPECITABINE
     Dosage: 1500 MG BID ORAL?
     Route: 048
     Dates: start: 202204

REACTIONS (5)
  - Thrombosis in device [None]
  - Unevaluable event [None]
  - Blood iron decreased [None]
  - Constipation [None]
  - Headache [None]

NARRATIVE: CASE EVENT DATE: 20220613
